FAERS Safety Report 7752544 (Version 4)
Quarter: 2013Q4

REPORT INFORMATION
  Report Type: Report from Study
  Country: US (occurrence: US)
  Receive Date: 20101208
  Receipt Date: 20131108
  Transmission Date: 20140711
  Serious: Yes (Hospitalization)
  Sender: FDA-Public Use
  Company Number: US-009507513-2010SP062599

PATIENT
  Age: 32 Year
  Sex: Female

DRUGS (2)
  1. RIBAVIRIN (+) INTERFERON ALFA-2B [Suspect]
     Dosage: 1000 MG, QD
     Dates: start: 201001, end: 201006
  2. PEGASYS [Suspect]
     Dosage: UNK UNK, UNKNOWN
     Route: 058
     Dates: start: 201001, end: 201006

REACTIONS (3)
  - Premature separation of placenta [Unknown]
  - Hypertension [Unknown]
  - Exposure via father [Recovered/Resolved]
